FAERS Safety Report 4744589-1 (Version None)
Quarter: 2005Q3

REPORT INFORMATION
  Report Type: 
  Country: None (occurrence: None)
  Receive Date: 20050808
  Receipt Date: 20041023
  Transmission Date: 20060218
  Serious: Yes (Other)
  Sender: FDA-Public Use
  Company Number: US-JNJFOC-20041008621

PATIENT
  Age: 3 Year
  Sex: Male

DRUGS (2)
  1. TYLENOL [Suspect]
     Indication: DRUG USE FOR UNKNOWN INDICATION
     Dosage: 1920 TO 3840 MG
     Dates: start: 20041023, end: 20041023
  2. ECHINACEA (ECHINACEA EXTRACT) LIQUID [Suspect]
     Indication: DRUG USE FOR UNKNOWN INDICATION
     Dosage: 15 ML, 1 IN 1 TOTAL, ORAL
     Route: 048
     Dates: start: 20041023, end: 20041023

REACTIONS (1)
  - ACCIDENTAL EXPOSURE [None]
